FAERS Safety Report 6922634-2 (Version None)
Quarter: 2010Q3

REPORT INFORMATION
  Report Type: 
  Country: None (occurrence: None)
  Receive Date: 20100813
  Receipt Date: 20100802
  Transmission Date: 20110219
  Serious: Yes (Hospitalization, Other)
  Sender: FDA-Public Use
  Company Number: PHHY2010US39090

PATIENT
  Sex: Female

DRUGS (6)
  1. GLEEVEC [Suspect]
     Indication: GASTROINTESTINAL STROMAL TUMOUR
     Dosage: 400 MG, DAILY
     Route: 048
     Dates: start: 20090918
  2. GLEEVEC [Suspect]
     Dosage: 400 MG, BID
     Route: 048
  3. VITAMIN B-12 [Concomitant]
     Route: 030
  4. ZOLAFREN [Concomitant]
  5. PROCHLORPERAZINE [Concomitant]
  6. ASPIRIN [Concomitant]

REACTIONS (22)
  - ANAEMIA MACROCYTIC [None]
  - ASTHENIA [None]
  - BLOOD POTASSIUM DECREASED [None]
  - DEPRESSION [None]
  - DISORIENTATION [None]
  - DIZZINESS [None]
  - DYSPNOEA [None]
  - EYE SWELLING [None]
  - FATIGUE [None]
  - FEELING HOT [None]
  - FLUID RETENTION [None]
  - HEADACHE [None]
  - HYPOAESTHESIA [None]
  - HYPOTENSION [None]
  - LOSS OF CONSCIOUSNESS [None]
  - MUSCLE SPASMS [None]
  - MUSCULAR WEAKNESS [None]
  - NAUSEA [None]
  - PALPITATIONS [None]
  - RASH [None]
  - RETCHING [None]
  - VOMITING [None]
